FAERS Safety Report 5444653-8 (Version None)
Quarter: 2007Q3

REPORT INFORMATION
  Report Type: 
  Country: None (occurrence: None)
  Receive Date: 20070906
  Receipt Date: 20070130
  Transmission Date: 20080115
  Serious: Yes (Hospitalization)
  Sender: FDA-Public Use
  Company Number: A0635976A

PATIENT
  Age: 65 Year
  Sex: Male
  Weight: 127 kg

DRUGS (23)
  1. REQUIP [Suspect]
     Indication: PARKINSON'S DISEASE
     Dosage: 45MG PER DAY
     Route: 048
  2. DIURETICS [Suspect]
     Indication: DRUG USE FOR UNKNOWN INDICATION
  3. LASIX [Concomitant]
     Dosage: 40MG PER DAY
     Route: 048
  4. ZOLOFT [Concomitant]
     Dosage: 250MG PER DAY
     Route: 048
  5. POTASSIUM CHLORIDE [Concomitant]
     Dosage: 25MEQ PER DAY
     Route: 048
  6. METFORMIN HCL [Concomitant]
     Dosage: 1500MG PER DAY
     Route: 048
  7. STALEVO 100 [Concomitant]
     Dosage: 3TAB PER DAY
     Route: 048
  8. OXYBUTYNIN CHLORIDE [Concomitant]
  9. ZESTRIL [Concomitant]
     Dosage: 20MG PER DAY
     Route: 048
  10. GLUCOSAMINE [Concomitant]
     Dosage: 2TAB PER DAY
     Route: 048
  11. VALIUM [Concomitant]
     Dosage: 5MG PER DAY
     Route: 048
  12. VICODIN [Concomitant]
  13. LANTUS [Concomitant]
     Dosage: 10UD PER DAY
     Route: 058
  14. TYLENOL (CAPLET) [Concomitant]
     Route: 048
  15. SENOKOT [Concomitant]
     Route: 048
  16. SINEMET [Concomitant]
     Route: 048
  17. COLACE [Concomitant]
     Route: 048
  18. ASPIRIN [Concomitant]
     Dosage: 325MG PER DAY
     Route: 048
  19. NORVASC [Concomitant]
     Dosage: 5MG PER DAY
     Route: 048
  20. AVANDIA [Concomitant]
     Dosage: 4MG PER DAY
     Route: 048
  21. ARICEPT [Concomitant]
     Dosage: 10MG PER DAY
     Route: 048
  22. DURAGESIC-100 [Concomitant]
     Dosage: 75MGH PER DAY
     Route: 062
  23. LEVAQUIN [Concomitant]
     Dosage: 500MG PER DAY
     Route: 042
     Dates: start: 20070118

REACTIONS (5)
  - ACUTE PRERENAL FAILURE [None]
  - HYPOGLYCAEMIA [None]
  - OVERDOSE [None]
  - PNEUMONIA [None]
  - RENAL FAILURE [None]
